FAERS Safety Report 16100568 (Version 1)
Quarter: 2019Q1

REPORT INFORMATION
  Report Type: Spontaneous
  Country: US (occurrence: US)
  Receive Date: 20190321
  Receipt Date: 20190321
  Transmission Date: 20190418
  Serious: No
  Sender: FDA-Public Use
  Company Number: US-ASTRAZENECA-2019SE31761

PATIENT
  Age: 21386 Day
  Sex: Female
  Weight: 67.1 kg

DRUGS (1)
  1. SYMBICORT [Suspect]
     Active Substance: BUDESONIDE\FORMOTEROL FUMARATE DIHYDRATE
     Indication: ASTHMA
     Dosage: 160/4.5 MCGS, TWO PUFFS,TWO TIMES A DAY
     Route: 055
     Dates: start: 201805

REACTIONS (3)
  - Bronchitis [Unknown]
  - Device failure [Unknown]
  - Intentional product misuse [Unknown]

NARRATIVE: CASE EVENT DATE: 20190212
